FAERS Safety Report 8311134-3 (Version None)
Quarter: 2012Q2

REPORT INFORMATION
  Report Type: 
  Country: None (occurrence: None)
  Receive Date: 20120425
  Receipt Date: 20120417
  Transmission Date: 20120825
  Serious: Yes (Life-Threatening, Hospitalization)
  Sender: FDA-Public Use
  Company Number: ES-ASTRAZENECA-2012SE25411

PATIENT
  Age: 31 Year
  Sex: Male

DRUGS (6)
  1. FLUVOXAMINE MALEATE [Interacting]
     Dosage: WITH A TOTAL DAILY DOSE OF 4.2 G.
     Route: 048
     Dates: start: 20111223, end: 20111223
  2. ETUMINE [Interacting]
     Dosage: WITH A TOTAL DAILY DOSE OF 1.6 G.
     Route: 048
     Dates: start: 20111223, end: 20111223
  3. SEROQUEL [Suspect]
     Dosage: WITH A TOTAL DAILY DOSE OF 13.6 G.
     Route: 048
     Dates: start: 20111223, end: 20111223
  4. LORMETAZEPAM [Interacting]
     Dosage: WITH A TOTAL DAILY DOSE OF 60 MG.
     Route: 048
     Dates: start: 20111223, end: 20111223
  5. LYRICA [Interacting]
     Dosage: WITH A TOTAL DAILY DOSE OF 30 G.
     Route: 048
     Dates: start: 20111223, end: 20111223
  6. DIAZEPAM [Interacting]
     Dosage: WITH A TOTAL DAILY DOSE OF 900 MG.
     Route: 048
     Dates: start: 20111223, end: 20111223

REACTIONS (4)
  - INTENTIONAL OVERDOSE [None]
  - MYOCLONUS [None]
  - DRUG INTERACTION [None]
  - COMA [None]
